FAERS Safety Report 13718113 (Version 1)
Quarter: 2017Q3

REPORT INFORMATION
  Report Type: Spontaneous
  Country: GB (occurrence: GB)
  Receive Date: 20170705
  Receipt Date: 20170705
  Transmission Date: 20171127
  Serious: Yes (Hospitalization, Other)
  Sender: FDA-Public Use
  Company Number: GB-ABBVIE-17P-167-2028652-00

PATIENT
  Sex: Female

DRUGS (1)
  1. CREON [Suspect]
     Active Substance: PANCRELIPASE AMYLASE\PANCRELIPASE LIPASE\PANCRELIPASE PROTEASE
     Indication: PANCREATITIS ACUTE
     Dosage: 3 DF, QD
     Route: 048
     Dates: start: 201702, end: 201706

REACTIONS (2)
  - Pleural effusion [Not Recovered/Not Resolved]
  - Rectal haemorrhage [Not Recovered/Not Resolved]
